FAERS Safety Report 5404466-X (Version None)
Quarter: 2007Q3

REPORT INFORMATION
  Report Type: 
  Country: None (occurrence: None)
  Receive Date: 20070802
  Receipt Date: 20070723
  Transmission Date: 20080115
  Serious: Yes (Other)
  Sender: FDA-Public Use
  Company Number: US-PFIZER INC-2007061730

PATIENT
  Sex: Male
  Weight: 83.181 kg

DRUGS (9)
  1. CHANTIX [Suspect]
     Indication: SMOKING CESSATION THERAPY
     Dates: start: 20070620, end: 20070718
  2. KLONOPIN [Concomitant]
     Indication: ANXIETY
  3. ZYPREXA [Concomitant]
  4. ADVAIR DISKUS 100/50 [Concomitant]
  5. MIRALAX [Concomitant]
  6. XOPENEX [Concomitant]
     Indication: DYSPNOEA
  7. ACETYLCYSTEINE [Concomitant]
     Indication: DYSPNOEA
  8. ASPIRIN [Concomitant]
  9. CENTRUM [Concomitant]

REACTIONS (5)
  - DUODENITIS [None]
  - FEELING ABNORMAL [None]
  - GASTRITIS [None]
  - STOMACH DISCOMFORT [None]
  - WRONG TECHNIQUE IN DRUG USAGE PROCESS [None]
